FAERS Safety Report 4575724-6 (Version None)
Quarter: 2005Q1

REPORT INFORMATION
  Report Type: 
  Country: None (occurrence: None)
  Receive Date: 20050117
  Receipt Date: 20040929
  Transmission Date: 20050727
  Serious: Yes (Other)
  Sender: FDA-Public Use
  Company Number: USA040979701

PATIENT
  Age: 58 Year
  Sex: Male
  Weight: 126 kg

DRUGS (6)
  1. STRATTERA [Suspect]
     Indication: ATTENTION DEFICIT/HYPERACTIVITY DISORDER
     Dosage: 60 MG/1 DAY
     Dates: start: 20040901
  2. CARDIZEM LA (DILTIAZEM) [Concomitant]
  3. DYAZIDE [Concomitant]
  4. SEROQUEL [Concomitant]
  5. EFFEXOR [Concomitant]
  6. XANAX (ALPRAZOLAM DUM) [Concomitant]

REACTIONS (1)
  - BLOOD PRESSURE INCREASED [None]
